FAERS Safety Report 19100320 (Version 1)
Quarter: 2021Q2

REPORT INFORMATION
  Report Type: Spontaneous
  Country: US (occurrence: US)
  Receive Date: 20210407
  Receipt Date: 20210407
  Transmission Date: 20210717
  Serious: No
  Sender: FDA-Public Use
  Company Number: US-JNJFOC-20210354565

PATIENT
  Age: 7 Year
  Sex: Female

DRUGS (1)
  1. CONCERTA [Suspect]
     Active Substance: METHYLPHENIDATE HYDROCHLORIDE
     Indication: PRODUCT USED FOR UNKNOWN INDICATION
     Route: 048

REACTIONS (5)
  - Emotional disorder [Unknown]
  - Inappropriate schedule of product administration [Unknown]
  - Affect lability [Unknown]
  - Crying [Unknown]
  - Anxiety [Not Recovered/Not Resolved]
